FAERS Safety Report 19031531 (Version 1)
Quarter: 2021Q1

REPORT INFORMATION
  Report Type: Spontaneous
  Country: US (occurrence: US)
  Receive Date: 20210319
  Receipt Date: 20210319
  Transmission Date: 20210420
  Serious: No
  Sender: FDA-Public Use
  Company Number: US-BRISTOL-MYERS SQUIBB COMPANY-BMS-2021-026800

PATIENT
  Age: 65 Year
  Sex: Female

DRUGS (1)
  1. OPDIVO [Suspect]
     Active Substance: NIVOLUMAB
     Indication: SOFT TISSUE SARCOMA
     Dosage: 240 MILLIGRAM, Q2WK
     Route: 042
     Dates: start: 202009

REACTIONS (2)
  - Intentional product use issue [Unknown]
  - Rash [Unknown]

NARRATIVE: CASE EVENT DATE: 202009
